FAERS Safety Report 26205880 (Version 1)
Quarter: 2025Q4

REPORT INFORMATION
  Report Type: Spontaneous
  Country: US (occurrence: US)
  Receive Date: 20251229
  Receipt Date: 20251229
  Transmission Date: 20260117
  Serious: No
  Sender: Haleon PLC
  Company Number: US-HALEON-2280819

PATIENT
  Age: 65 Year
  Sex: Female

DRUGS (2)
  1. NICOTINE POLACRILEX [Suspect]
     Active Substance: NICOTINE
     Indication: Smoking cessation therapy
  2. NICOTINE POLACRILEX [Suspect]
     Active Substance: NICOTINE

REACTIONS (1)
  - Abdominal discomfort [Not Recovered/Not Resolved]
